FAERS Safety Report 23352869 (Version 1)
Quarter: 2023Q4

REPORT INFORMATION
  Report Type: Report from Study
  Country: GR (occurrence: GR)
  Receive Date: 20231230
  Receipt Date: 20231230
  Transmission Date: 20240109
  Serious: Yes (Hospitalization, Other)
  Sender: FDA-Public Use
  Company Number: GR-ABBVIE-5558361

PATIENT
  Age: 72 Year
  Sex: Female

DRUGS (2)
  1. CARBIDOPA\LEVODOPA [Suspect]
     Active Substance: CARBIDOPA\LEVODOPA
     Indication: Parkinson^s disease
     Dosage: MORNING DOSE: 11.0ML; CONTINUOUS RATE: 2.4ML/H; EXTRA DOSE: 1.0ML?LAST ADMIN DATE-2023
     Route: 050
     Dates: start: 20231024
  2. CARBIDOPA\LEVODOPA [Suspect]
     Active Substance: CARBIDOPA\LEVODOPA
     Dosage: MORNING DOSE: 10.0ML; CONTINUOUS RATE: 2.2ML/H; EXTRA DOSE: 1.0ML?FIRST ADMIN DATE- 2023
     Route: 050
     Dates: end: 20231221

REACTIONS (5)
  - Infection [Not Recovered/Not Resolved]
  - Stoma site erythema [Unknown]
  - Stoma site induration [Unknown]
  - Hyperkinesia [Not Recovered/Not Resolved]
  - Pyrexia [Not Recovered/Not Resolved]

NARRATIVE: CASE EVENT DATE: 20231221
